FAERS Safety Report 5046099-3 (Version None)
Quarter: 2006Q3

REPORT INFORMATION
  Report Type: 
  Country: None (occurrence: None)
  Receive Date: 20060710
  Receipt Date: 20060629
  Transmission Date: 20061208
  Serious: Yes (Other)
  Sender: FDA-Public Use
  Company Number: CA-JNJFOC-20060606655

PATIENT
  Sex: Male

DRUGS (2)
  1. REMICADE [Suspect]
     Dosage: 9TH INFUSION
     Route: 042
  2. REMICADE [Suspect]
     Indication: DRUG USE FOR UNKNOWN INDICATION
     Dosage: 8 INFUSIONS ON UNKNOWN DATES
     Route: 042

REACTIONS (4)
  - INFUSION RELATED REACTION [None]
  - PYODERMA GANGRENOSUM [None]
  - RASH PRURITIC [None]
  - URTICARIA [None]
